FAERS Safety Report 18311552 (Version 1)
Quarter: 2020Q3

REPORT INFORMATION
  Report Type: Spontaneous
  Country: US (occurrence: US)
  Receive Date: 20200924
  Receipt Date: 20200924
  Transmission Date: 20201103
  Serious: No
  Sender: FDA-Public Use
  Company Number: None

PATIENT
  Age: 83 Year
  Sex: Male

DRUGS (2)
  1. WARFARIN (WARFARIN NA (EXELAN) 5MG TAB) [Suspect]
     Active Substance: WARFARIN SODIUM
     Route: 048
  2. METHYLPREDNISOLONE (METHYLPREDNISOLONE 4MG TAB) [Suspect]
     Active Substance: METHYLPREDNISOLONE
     Dosage: ?          OTHER ROUTE:IV?

REACTIONS (3)
  - Anticoagulation drug level above therapeutic [None]
  - Chronic obstructive pulmonary disease [None]
  - Therapy interrupted [None]

NARRATIVE: CASE EVENT DATE: 20181202
